FAERS Safety Report 19710903 (Version 1)
Quarter: 2021Q3

REPORT INFORMATION
  Report Type: Report from Study
  Country: IE (occurrence: IE)
  Receive Date: 20210817
  Receipt Date: 20210817
  Transmission Date: 20211014
  Serious: Yes (Other)
  Sender: FDA-Public Use
  Company Number: IE-MYLANLABS-2021M1051247

PATIENT
  Age: 66 Year
  Sex: Female

DRUGS (1)
  1. HULIO [Suspect]
     Active Substance: ADALIMUMAB-FKJP
     Indication: RHEUMATOID ARTHRITIS
     Dosage: 40 MILLIGRAM, QW
     Dates: start: 20190201, end: 20190430

REACTIONS (1)
  - Drug ineffective [Recovered/Resolved]

NARRATIVE: CASE EVENT DATE: 2019
